FAERS Safety Report 5268391-X (Version None)
Quarter: 2007Q1

REPORT INFORMATION
  Report Type: 
  Country: None (occurrence: None)
  Receive Date: 20070319
  Receipt Date: 20070306
  Transmission Date: 20070707
  Serious: Yes (Hospitalization)
  Sender: FDA-Public Use
  Company Number: PHBS2005NZ02123

PATIENT
  Age: 40 Year
  Sex: Male

DRUGS (5)
  1. CLOZARIL [Suspect]
     Dosage: 700 MG/DAY
     Route: 048
     Dates: start: 20020807, end: 20050116
  2. CLOZARIL [Suspect]
     Dates: end: 20070220
  3. ANTIHISTAMINICS [Concomitant]
     Indication: ARTHROPOD STING
     Dates: start: 20050101
  4. CHLORPROMAZINE [Concomitant]
     Indication: AGGRESSION
  5. EPILIM [Concomitant]
     Dosage: 1500 MG/D

REACTIONS (7)
  - AGGRESSION [None]
  - BLOOD CREATINE PHOSPHOKINASE INCREASED [None]
  - DYSSTASIA [None]
  - MUSCLE RIGIDITY [None]
  - NEUROLEPTIC MALIGNANT SYNDROME [None]
  - PNEUMONIA ASPIRATION [None]
  - PYREXIA [None]
